FAERS Safety Report 8031683-5 (Version None)
Quarter: 2012Q1

REPORT INFORMATION
  Report Type: 
  Country: None (occurrence: None)
  Receive Date: 20120109
  Receipt Date: 20120106
  Transmission Date: 20120608
  Serious: No
  Sender: FDA-Public Use
  Company Number: US-PFIZER INC-2012004861

PATIENT
  Sex: Female
  Weight: 90.703 kg

DRUGS (3)
  1. DETROL LA [Suspect]
     Indication: INCONTINENCE
     Dosage: 4 MG, 1X/DAY
     Route: 048
     Dates: start: 20060201
  2. CITALOPRAM [Concomitant]
     Indication: ANXIETY
     Dosage: UNK
  3. VYTORIN [Concomitant]
     Indication: BLOOD CHOLESTEROL ABNORMAL
     Dosage: UNK

REACTIONS (1)
  - DRUG INEFFECTIVE [None]
